FAERS Safety Report 18534455 (Version 1)
Quarter: 2020Q4

REPORT INFORMATION
  Report Type: Spontaneous
  Country: US (occurrence: US)
  Receive Date: 20201123
  Receipt Date: 20201123
  Transmission Date: 20210114
  Serious: Yes (Other)
  Sender: FDA-Public Use
  Company Number: None

PATIENT
  Age: 51 Year
  Sex: Female
  Weight: 69.75 kg

DRUGS (3)
  1. NOVOLOG [Concomitant]
     Active Substance: INSULIN ASPART
  2. SIMVASTATIN. [Suspect]
     Active Substance: SIMVASTATIN
     Indication: BLOOD CHOLESTEROL
     Route: 048
  3. MEDTRONIC PARADIGM 523 [Concomitant]

REACTIONS (9)
  - Amnesia [None]
  - Insomnia [None]
  - Depressed mood [None]
  - Fatigue [None]
  - Nightmare [None]
  - Depression [None]
  - Back pain [None]
  - Somnolence [None]
  - Memory impairment [None]

NARRATIVE: CASE EVENT DATE: 20200617
